FAERS Safety Report 4693427-4 (Version None)
Quarter: 2005Q2

REPORT INFORMATION
  Report Type: 
  Country: None (occurrence: None)
  Receive Date: 20050615
  Receipt Date: 20050602
  Transmission Date: 20051028
  Serious: Yes (Disabling, Other)
  Sender: FDA-Public Use
  Company Number: 2005083661

PATIENT
  Age: 68 Year
  Sex: Male
  Weight: 99.7913 kg

DRUGS (6)
  1. VIAGRA [Suspect]
     Indication: ERECTILE DYSFUNCTION
     Dosage: ORAL
     Route: 048
     Dates: start: 20030101, end: 20030601
  2. DIOVAN ^CIBA-GEIGY^ (VALSARTAN) [Concomitant]
  3. HYDROCHLOROTHIAZIDE [Concomitant]
  4. ZOLOFT [Concomitant]
  5. ZOCOR [Concomitant]
  6. VITAMINS (VITAMINS) [Concomitant]

REACTIONS (8)
  - BLINDNESS [None]
  - DISEASE RECURRENCE [None]
  - ERECTILE DYSFUNCTION [None]
  - INCONTINENCE [None]
  - PROCEDURAL COMPLICATION [None]
  - PROSTATE CANCER [None]
  - RETINAL ARTERY OCCLUSION [None]
  - VISUAL ACUITY REDUCED [None]
